FAERS Safety Report 25625281 (Version 1)
Quarter: 2025Q3

REPORT INFORMATION
  Report Type: Spontaneous
  Country: GB (occurrence: GB)
  Receive Date: 20250731
  Receipt Date: 20250731
  Transmission Date: 20251021
  Serious: Yes (Death, Other)
  Sender: TEVA
  Company Number: GB-SANDOZ-SDZ2023GB008020

PATIENT
  Sex: Female

DRUGS (2)
  1. PROPRANOLOL [Suspect]
     Active Substance: PROPRANOLOL HYDROCHLORIDE
     Indication: Anxiety
     Route: 065
  2. ACETAMINOPHEN [Suspect]
     Active Substance: ACETAMINOPHEN
     Indication: Ligament sprain
     Route: 065

REACTIONS (4)
  - Cardiac arrest [Fatal]
  - Product prescribing error [Unknown]
  - Condition aggravated [Fatal]
  - Product prescribing issue [Unknown]
